FAERS Safety Report 8078907-6 (Version None)
Quarter: 2012Q1

REPORT INFORMATION
  Report Type: 
  Country: None (occurrence: None)
  Receive Date: 20120128
  Receipt Date: 20110422
  Transmission Date: 20120608
  Serious: No
  Sender: FDA-Public Use
  Company Number: US-ABBOTT-11P-163-0721421-00

PATIENT
  Age: 28 Year
  Sex: Female

DRUGS (3)
  1. HUMIRA [Suspect]
     Indication: CROHN'S DISEASE
     Dates: start: 20100801
  2. ASACOL [Concomitant]
     Indication: CROHN'S DISEASE
  3. SYNTHROID [Concomitant]
     Indication: BLOOD THYROID STIMULATING HORMONE DECREASED

REACTIONS (5)
  - RHINORRHOEA [None]
  - SINUS HEADACHE [None]
  - NASOPHARYNGITIS [None]
  - SINUS CONGESTION [None]
  - INFLUENZA LIKE ILLNESS [None]
